FAERS Safety Report 9424080 (Version 1)
Quarter: 2013Q3

REPORT INFORMATION
  Report Type: Spontaneous
  Country: US (occurrence: US)
  Receive Date: 20130729
  Receipt Date: 20130729
  Transmission Date: 20140515
  Serious: Yes (Other)
  Sender: FDA-Public Use
  Company Number: PHEH2013US015641

PATIENT
  Age: 62 Year
  Sex: Male

DRUGS (4)
  1. DIOVAN [Suspect]
     Dosage: 320 MG, QD
  2. HYDROCHLOROTHIAZIDE [Suspect]
     Dosage: 25 MG, UNK
  3. NIFEDIPINE XL [Suspect]
     Dosage: 90 MG, UNK
  4. PROVENTIL [Suspect]
     Dosage: 90 UG, UNK

REACTIONS (1)
  - Prostate cancer [Unknown]
